FAERS Safety Report 15202531 (Version 3)
Quarter: 2018Q3

REPORT INFORMATION
  Report Type: Spontaneous
  Country: ES (occurrence: ES)
  Receive Date: 20180726
  Receipt Date: 20180910
  Transmission Date: 20181010
  Serious: Yes (Other)
  Sender: FDA-Public Use
  Company Number: ES-SA-2018SA203132

PATIENT
  Age: 62 Year
  Sex: Female

DRUGS (2)
  1. PRALUENT [Suspect]
     Active Substance: ALIROCUMAB
     Indication: HYPERCHOLESTEROLAEMIA
     Dosage: 75 MG, QOW
     Route: 058
     Dates: start: 20180719
  2. ALIROCUMAB PREFILLED PEN [Suspect]
     Active Substance: ALIROCUMAB
     Indication: HYPERCHOLESTEROLAEMIA
     Dosage: 75 MG, QOW
     Route: 058
     Dates: start: 20180719

REACTIONS (5)
  - Secretion discharge [Not Recovered/Not Resolved]
  - Oropharyngeal discomfort [Recovering/Resolving]
  - Oropharyngeal pain [Recovering/Resolving]
  - Stomatitis [Recovering/Resolving]
  - Aphonia [Not Recovered/Not Resolved]

NARRATIVE: CASE EVENT DATE: 20180720
